FAERS Safety Report 15559139 (Version 2)
Quarter: 2018Q4

REPORT INFORMATION
  Report Type: Spontaneous
  Country: FR (occurrence: FR)
  Receive Date: 20181029
  Receipt Date: 20181128
  Transmission Date: 20190205
  Serious: Yes (Hospitalization)
  Sender: FDA-Public Use
  Company Number: FR-TEVA-2018-FR-968410

PATIENT
  Age: 78 Year
  Sex: Female

DRUGS (14)
  1. PREVISCAN 20 MG, COMPRIM? S?CABLE [Suspect]
     Active Substance: FLUINDIONE
     Indication: ATRIAL FIBRILLATION
     Route: 048
     Dates: start: 201608, end: 20180923
  2. DIFFU K, G?LULE [Concomitant]
     Active Substance: POTASSIUM CHLORIDE
     Route: 065
  3. AMOXICILLINE [Suspect]
     Active Substance: AMOXICILLIN
     Indication: LUNG INFECTION
     Dosage: 3 GRAM DAILY;
     Route: 048
     Dates: start: 20180921
  4. NOVORAPID [Concomitant]
     Active Substance: INSULIN ASPART
     Route: 065
  5. FUROSEMIDE. [Concomitant]
     Active Substance: FUROSEMIDE
     Route: 065
  6. PARACETAMOL [Concomitant]
     Active Substance: ACETAMINOPHEN
     Route: 065
  7. SOTALOL (CHLORHYDRATE DE) [Concomitant]
     Active Substance: SOTALOL
     Route: 065
  8. LEVOTHYROX [Concomitant]
     Active Substance: LEVOTHYROXINE
     Route: 065
  9. HYDROCORTISONE. [Concomitant]
     Active Substance: HYDROCORTISONE
     Route: 065
  10. TRAMADOL BASE [Concomitant]
     Active Substance: TRAMADOL
     Route: 065
  11. LANTUS [Concomitant]
     Active Substance: INSULIN GLARGINE
     Route: 065
  12. PREDNISONE. [Suspect]
     Active Substance: PREDNISONE
     Indication: LUNG INFECTION
     Dosage: 15 MILLIGRAM DAILY;
     Route: 048
     Dates: start: 20180921, end: 20180923
  13. CACIT [Concomitant]
     Active Substance: CALCIUM\VITAMIN D
     Route: 065
  14. PANTOPRAZOLE [Concomitant]
     Active Substance: PANTOPRAZOLE
     Route: 065

REACTIONS (1)
  - Cerebral haematoma [Not Recovered/Not Resolved]

NARRATIVE: CASE EVENT DATE: 20180923
